FAERS Safety Report 20507403 (Version 1)
Quarter: 2022Q1

REPORT INFORMATION
  Report Type: Spontaneous
  Country: US (occurrence: None)
  Receive Date: 20220222
  Receipt Date: 20220222
  Transmission Date: 20220423
  Serious: Yes (Other)
  Sender: FDA-Public Use
  Company Number: None

PATIENT
  Age: 2 Month
  Weight: 5 kg

DRUGS (2)
  1. OXYMETAZOLINE HYDROCHLORIDE [Suspect]
     Active Substance: OXYMETAZOLINE HYDROCHLORIDE
     Indication: Epistaxis
     Dates: start: 20220218, end: 20220218
  2. Afrin Original (oxymetazoline 0.05%) [Concomitant]
     Dates: start: 20220218, end: 20220218

REACTIONS (4)
  - Product substitution issue [None]
  - Therapy non-responder [None]
  - Haemorrhage [None]
  - Physical product label issue [None]

NARRATIVE: CASE EVENT DATE: 20220218
